FAERS Safety Report 21795861 (Version 2)
Quarter: 2023Q1

REPORT INFORMATION
  Report Type: Spontaneous
  Country: IL (occurrence: IL)
  Receive Date: 20221229
  Receipt Date: 20230111
  Transmission Date: 20230418
  Serious: Yes (Other)
  Sender: FDA-Public Use
  Company Number: IL-TEVAIL-2022-IL-2840324

PATIENT
  Sex: Male

DRUGS (11)
  1. TOPIRAMATE [Suspect]
     Active Substance: TOPIRAMATE
     Indication: Neonatal epileptic seizure
     Dosage: 10 MG/KG
     Route: 065
  2. VALPROIC ACID [Suspect]
     Active Substance: VALPROIC ACID
     Indication: Neonatal epileptic seizure
     Dosage: 30 MG/KG
     Route: 065
  3. CLONAZEPAM [Suspect]
     Active Substance: CLONAZEPAM
     Indication: Neonatal epileptic seizure
     Dosage: 0.1 MG/KG
     Route: 065
  4. DIAZEPAM [Suspect]
     Active Substance: DIAZEPAM
     Indication: Neonatal epileptic seizure
     Route: 048
  5. PHENOBARBITAL [Suspect]
     Active Substance: PHENOBARBITAL
     Indication: Neonatal epileptic seizure
     Dosage: 20 MG/KG
     Route: 065
  6. PHENYTOIN [Suspect]
     Active Substance: PHENYTOIN
     Indication: Neonatal epileptic seizure
     Dosage: 20 MG/KG
     Route: 065
  7. LEVETIRACETAM [Suspect]
     Active Substance: LEVETIRACETAM
     Indication: Neonatal epileptic seizure
     Dosage: 40 MG/KG
     Route: 065
  8. CARBAMAZEPINE [Suspect]
     Active Substance: CARBAMAZEPINE
     Indication: Neonatal epileptic seizure
     Dosage: 20 MG/KG
     Route: 065
  9. EZOGABINE [Suspect]
     Active Substance: EZOGABINE
     Indication: Neonatal epileptic seizure
     Dosage: RETIGABINE TABLETS WERE CRUSHED AND ADMINISTERED THROUGH GASTROSTOMY TUBE
     Route: 065
  10. EZOGABINE [Suspect]
     Active Substance: EZOGABINE
     Dosage: GRADUALLY INCREASED UP TO 15 MG/KG (RETIGABINE TABLETS WERE CRUSHED AND ADMINISTERED THROUGH GAST...
     Route: 065
  11. Potassium-bromide [Concomitant]
     Indication: Neonatal epileptic seizure
     Dosage: 40 MG/KG
     Route: 065

REACTIONS (3)
  - Drug ineffective [Unknown]
  - Rebound effect [Unknown]
  - Off label use [Unknown]
